FAERS Safety Report 9805305 (Version 1)
Quarter: 2014Q1

REPORT INFORMATION
  Report Type: Spontaneous
  Country: US (occurrence: None)
  Receive Date: 20140108
  Receipt Date: 20140108
  Transmission Date: 20141002
  Serious: Yes (Life-Threatening, Disabling, Other)
  Sender: FDA-Public Use
  Company Number: None

PATIENT
  Age: 61 Year
  Sex: Male
  Weight: 77.11 kg

DRUGS (4)
  1. PEGINTRON [Suspect]
     Indication: LIVER DISORDER
     Dates: start: 201204, end: 201211
  2. PEGINTRON [Suspect]
     Indication: DRUG PRESCRIBING ERROR
     Dates: start: 201204, end: 201211
  3. RIBAVIRIN [Suspect]
     Dosage: 200 CAP PILLS SWALLED WITH WATER 12 PILLS EVERYDAY
  4. VICTRELIS [Suspect]
     Dosage: 200 MG PILLS SWALLOED WITH WATER 12 PILLS EVERDAY

REACTIONS (2)
  - Abdominal discomfort [None]
  - Abdominal pain upper [None]
